FAERS Safety Report 23623447 (Version 1)
Quarter: 2024Q1

REPORT INFORMATION
  Report Type: Spontaneous
  Country: US (occurrence: US)
  Receive Date: 20240312
  Receipt Date: 20240312
  Transmission Date: 20240410
  Serious: No
  Sender: FDA-Public Use
  Company Number: US-ABBVIE-5670420

PATIENT
  Age: 42 Year
  Sex: Female
  Weight: 59 kg

DRUGS (2)
  1. BOTOX COSMETIC [Suspect]
     Active Substance: ONABOTULINUMTOXINA
     Indication: Product used for unknown indication
     Dosage: TIME INTERVAL: AS NECESSARY: 28 TO 35 UNITS
     Route: 030
     Dates: start: 202208, end: 20240303
  2. VITAMIN C [Concomitant]
     Active Substance: ASCORBIC ACID
     Indication: Product used for unknown indication

REACTIONS (7)
  - Hypersensitivity [Recovering/Resolving]
  - Eye haemorrhage [Recovering/Resolving]
  - Hyperaesthesia [Recovering/Resolving]
  - Off label use [Not Recovered/Not Resolved]
  - Pruritus [Recovering/Resolving]
  - Ocular hyperaemia [Recovering/Resolving]
  - Inflammation [Recovering/Resolving]

NARRATIVE: CASE EVENT DATE: 20240303
